FAERS Safety Report 19777110 (Version 2)
Quarter: 2021Q3

REPORT INFORMATION
  Report Type: Spontaneous
  Country: CN (occurrence: CN)
  Receive Date: 20210901
  Receipt Date: 20210907
  Transmission Date: 20211014
  Serious: Yes (Hospitalization, Other)
  Sender: FDA-Public Use
  Company Number: CN-GILEAD-2021-0546406

PATIENT
  Age: 64 Year
  Sex: Male

DRUGS (1)
  1. HEPSERA [Suspect]
     Active Substance: ADEFOVIR DIPIVOXIL
     Indication: CHRONIC HEPATITIS B
     Dosage: UNK
     Route: 048

REACTIONS (15)
  - Joint swelling [Recovering/Resolving]
  - Gait disturbance [Recovering/Resolving]
  - Arthralgia [Recovering/Resolving]
  - Femoral neck fracture [Unknown]
  - Hypokinesia [Recovering/Resolving]
  - Skin oedema [Unknown]
  - Hypophosphataemic osteomalacia [Unknown]
  - Meniscus injury [Unknown]
  - Condition aggravated [Recovering/Resolving]
  - Osteoarthritis [Unknown]
  - Femur fracture [Unknown]
  - Bone hypertrophy [Unknown]
  - Bone marrow oedema [Unknown]
  - Stress fracture [Unknown]
  - Joint effusion [Unknown]
